FAERS Safety Report 11964113 (Version 1)
Quarter: 2016Q1

REPORT INFORMATION
  Report Type: Report from Study
  Country: US (occurrence: US)
  Receive Date: 20160126
  Receipt Date: 20160126
  Transmission Date: 20160526
  Serious: No
  Sender: FDA-Public Use
  Company Number: US-ABBVIE-15K-163-1380073-00

PATIENT
  Age: 48 Year
  Sex: Female

DRUGS (2)
  1. CYMBALTA [Suspect]
     Active Substance: DULOXETINE HYDROCHLORIDE
     Indication: NEURALGIA
     Route: 065
  2. HUMIRA [Suspect]
     Active Substance: ADALIMUMAB
     Indication: PSORIASIS
     Route: 065
     Dates: start: 20140301

REACTIONS (7)
  - Fatigue [Recovering/Resolving]
  - Hyperkeratosis [Unknown]
  - Neuralgia [Recovering/Resolving]
  - Spinal osteoarthritis [Not Recovered/Not Resolved]
  - Foot deformity [Not Recovered/Not Resolved]
  - Pain in extremity [Unknown]
  - Headache [Recovering/Resolving]

NARRATIVE: CASE EVENT DATE: 20150406
